FAERS Safety Report 6665248-4 (Version None)
Quarter: 2010Q2

REPORT INFORMATION
  Report Type: 
  Country: None (occurrence: None)
  Receive Date: 20100402
  Receipt Date: 20100325
  Transmission Date: 20101027
  Serious: Yes (Hospitalization)
  Sender: FDA-Public Use
  Company Number: US-ASTRAZENECA-2010SE13318

PATIENT
  Age: 29090 Day
  Sex: Male
  Weight: 78.5 kg

DRUGS (7)
  1. ATACAND [Suspect]
     Indication: HYPERTENSION
     Route: 048
     Dates: start: 20080725
  2. CADUET [Suspect]
     Indication: HYPERTENSION
     Route: 048
     Dates: start: 20080725
  3. STUDY PROCEDURE [Suspect]
     Indication: HYPERTENSION
  4. PLAVIX [Concomitant]
  5. METOPROLOL TARTRATE [Concomitant]
  6. DOXAZOSIN [Concomitant]
  7. ASPIRIN [Concomitant]

REACTIONS (1)
  - HOSPITALISATION [None]
